FAERS Safety Report 15833818 (Version 2)
Quarter: 2019Q1

REPORT INFORMATION
  Report Type: Spontaneous
  Country: TW (occurrence: TW)
  Receive Date: 20190116
  Receipt Date: 20190213
  Transmission Date: 20190417
  Serious: Yes (Death, Hospitalization)
  Sender: FDA-Public Use
  Company Number: TW-PFIZER INC-2019016552

PATIENT
  Age: 57 Year
  Sex: Female

DRUGS (3)
  1. METHOTREXATE. [Concomitant]
     Active Substance: METHOTREXATE
     Dosage: 10 MG, WEEKLY
  2. GENIQUIN [Concomitant]
     Dosage: 300 MG, DAILY
  3. XELJANZ [Suspect]
     Active Substance: TOFACITINIB CITRATE
     Indication: RHEUMATOID ARTHRITIS
     Dosage: 5 MG, 2X/DAY
     Route: 048
     Dates: start: 20160324

REACTIONS (7)
  - Duodenal perforation [Fatal]
  - Sepsis [Fatal]
  - Psoas abscess [Not Recovered/Not Resolved]
  - Pain [Not Recovered/Not Resolved]
  - Multiple organ dysfunction syndrome [Fatal]
  - Muscular weakness [Not Recovered/Not Resolved]
  - Peritonitis [Fatal]

NARRATIVE: CASE EVENT DATE: 20190104
